FAERS Safety Report 21976797 (Version 4)
Quarter: 2023Q2

REPORT INFORMATION
  Report Type: Report from Study
  Country: US (occurrence: US)
  Receive Date: 20230210
  Receipt Date: 20230424
  Transmission Date: 20230722
  Serious: Yes (Other)
  Sender: FDA-Public Use
  Company Number: US-002147023-NVSC2023US026631

PATIENT
  Sex: Female

DRUGS (4)
  1. KESIMPTA [Suspect]
     Active Substance: OFATUMUMAB
     Indication: Relapsing-remitting multiple sclerosis
     Dosage: 0.4 ML, QMO
     Route: 058
     Dates: start: 20221020
  2. KESIMPTA [Suspect]
     Active Substance: OFATUMUMAB
     Indication: Clinically isolated syndrome
     Dosage: 20 MG, QMO
     Route: 058
  3. KESIMPTA [Suspect]
     Active Substance: OFATUMUMAB
     Indication: Secondary progressive multiple sclerosis
  4. KESIMPTA [Suspect]
     Active Substance: OFATUMUMAB
     Indication: Multiple sclerosis

REACTIONS (3)
  - Fall [Unknown]
  - Lower limb fracture [Unknown]
  - Ankle fracture [Unknown]
